FAERS Safety Report 6954730-8 (Version None)
Quarter: 2010Q3

REPORT INFORMATION
  Report Type: 
  Country: None (occurrence: None)
  Receive Date: 20100829
  Receipt Date: 20090921
  Transmission Date: 20110219
  Serious: No
  Sender: FDA-Public Use
  Company Number: US-ALLERGAN-0913152US

PATIENT
  Sex: Male

DRUGS (1)
  1. ACULAR LS [Suspect]
     Indication: PROPHYLAXIS
     Dosage: 1 GTT, QID
     Route: 047
     Dates: start: 20090831

REACTIONS (2)
  - EYE IRRITATION [None]
  - EYE PAIN [None]
